FAERS Safety Report 4335698-X (Version None)
Quarter: 2004Q2

REPORT INFORMATION
  Report Type: 
  Country: None (occurrence: None)
  Receive Date: 20040409
  Receipt Date: 20040303
  Transmission Date: 20050107
  Serious: Yes (Congenital Anomaly)
  Sender: FDA-Public Use
  Company Number: NL-GLAXOSMITHKLINE-B0325401A

PATIENT
  Age: 1 Day
  Sex: Female

DRUGS (2)
  1. PAROXETINE HCL [Suspect]
     Dosage: 20MG UNKNOWN
  2. NO CONCURRENT MEDICATION [Concomitant]

REACTIONS (3)
  - DRUG EXPOSURE DURING PREGNANCY [None]
  - DRUG WITHDRAWAL SYNDROME NEONATAL [None]
  - PATENT DUCTUS ARTERIOSUS [None]
